FAERS Safety Report 17562135 (Version 1)
Quarter: 2020Q1

REPORT INFORMATION
  Report Type: Spontaneous
  Country: US (occurrence: US)
  Receive Date: 20200319
  Receipt Date: 20200319
  Transmission Date: 20200409
  Serious: Yes (Other)
  Sender: FDA-Public Use
  Company Number: US-CELGENEUS-USA-20200305726

PATIENT
  Sex: Female

DRUGS (1)
  1. OTEZLA [Suspect]
     Active Substance: APREMILAST
     Indication: COMPLEMENT FACTOR ABNORMAL
     Dosage: 60 MILLIGRAM
     Route: 048
     Dates: start: 20190511

REACTIONS (1)
  - Pneumonia [Unknown]
